FAERS Safety Report 5002938-3 (Version None)
Quarter: 2006Q2

REPORT INFORMATION
  Report Type: 
  Country: None (occurrence: None)
  Receive Date: 20060516
  Receipt Date: 20060512
  Transmission Date: 20061013
  Serious: Yes (Other)
  Sender: FDA-Public Use
  Company Number: US-GLAXOSMITHKLINE-A0605425A

PATIENT
  Sex: Male

DRUGS (1)
  1. ZOFRAN [Suspect]
     Indication: VOMITING
     Dosage: 4MG TWICE PER DAY
     Dates: start: 20021001

REACTIONS (4)
  - ASTHMA [None]
  - DRUG EXPOSURE DURING PREGNANCY [None]
  - GASTROOESOPHAGEAL REFLUX DISEASE [None]
  - HYPOTONIA [None]
